FAERS Safety Report 5979724-0 (Version None)
Quarter: 2008Q4

REPORT INFORMATION
  Report Type: 
  Country: None (occurrence: None)
  Receive Date: 20081204
  Receipt Date: 20080218
  Transmission Date: 20090506
  Serious: No
  Sender: FDA-Public Use
  Company Number: US-AMGEN-KDL265918

PATIENT
  Sex: Male

DRUGS (4)
  1. ENBREL [Suspect]
     Indication: PSORIASIS
     Dates: start: 20050801, end: 20080215
  2. ENBREL [Suspect]
     Indication: PSORIATIC ARTHROPATHY
  3. ZANTAC [Concomitant]
  4. XYZAL [Concomitant]

REACTIONS (6)
  - ABDOMINAL PAIN UPPER [None]
  - DYSPEPSIA [None]
  - INJECTION SITE HAEMATOMA [None]
  - INJECTION SITE REACTION [None]
  - INJECTION SITE SWELLING [None]
  - INJECTION SITE URTICARIA [None]
